FAERS Safety Report 13281196 (Version 2)
Quarter: 2017Q1

REPORT INFORMATION
  Report Type: Spontaneous
  Country: QA (occurrence: QA)
  Receive Date: 20170301
  Receipt Date: 20170316
  Transmission Date: 20170428
  Serious: Yes (Hospitalization, Other)
  Sender: FDA-Public Use
  Company Number: QA-SUN PHARMACEUTICAL INDUSTRIES LTD-2017RR-134397

PATIENT
  Age: 22 Year
  Sex: Female

DRUGS (3)
  1. PYRIDOXINE [Concomitant]
     Active Substance: PYRIDOXINE
     Indication: HYPEREMESIS GRAVIDARUM
     Dosage: 40 MG, QD
     Route: 048
  2. METOCLOPRAMIDE. [Concomitant]
     Active Substance: METOCLOPRAMIDE
     Indication: HYPEREMESIS GRAVIDARUM
     Dosage: 20 MG, BID
     Route: 065
  3. ESOMEPRAZOLE [Suspect]
     Active Substance: ESOMEPRAZOLE
     Indication: HYPEREMESIS GRAVIDARUM
     Dosage: 40 MG, BID
     Route: 065

REACTIONS (2)
  - Exposure during pregnancy [Unknown]
  - Liver injury [Recovered/Resolved]
